FAERS Safety Report 9449602 (Version 3)
Quarter: 2013Q4

REPORT INFORMATION
  Report Type: Spontaneous
  Country: US (occurrence: US)
  Receive Date: 20130809
  Receipt Date: 20131016
  Transmission Date: 20140711
  Serious: No
  Sender: FDA-Public Use
  Company Number: US-PFIZER INC-2013230164

PATIENT
  Age: 71 Year
  Sex: Female

DRUGS (6)
  1. XALKORI [Suspect]
     Indication: LUNG NEOPLASM MALIGNANT
     Dosage: 250 MG, 2X/DAY
     Route: 048
     Dates: start: 20121202
  2. XALKORI [Suspect]
     Dosage: 250 MG, 2X/DAY
     Dates: start: 201304
  3. XALKORI [Suspect]
     Dosage: 250 MG, 1X/DAY
     Dates: start: 20130719
  4. MEGACE [Concomitant]
     Indication: APPETITE DISORDER
     Dosage: 40 MG, UNK
  5. SYMBICORT [Concomitant]
     Dosage: UNK
  6. NEXIUM [Concomitant]
     Dosage: UNK

REACTIONS (5)
  - Oedema peripheral [Recovered/Resolved]
  - Dyspnoea [Recovering/Resolving]
  - Musculoskeletal pain [Recovering/Resolving]
  - Pain in extremity [Recovering/Resolving]
  - Memory impairment [Unknown]
